FAERS Safety Report 7694185-1 (Version None)
Quarter: 2011Q3

REPORT INFORMATION
  Report Type: 
  Country: None (occurrence: None)
  Receive Date: 20110819
  Receipt Date: 20110809
  Transmission Date: 20111222
  Serious: Yes (Other)
  Sender: FDA-Public Use
  Company Number: US-ELI_LILLY_AND_COMPANY-US201108004827

PATIENT

DRUGS (2)
  1. EFFIENT [Suspect]
     Indication: ACUTE CORONARY SYNDROME
     Dosage: 10 MG, UNKNOWN
  2. CLOPIDOGREL [Concomitant]

REACTIONS (2)
  - MEDICAL DEVICE IMPLANTATION [None]
  - IMPLANT SITE HAEMORRHAGE [None]
